FAERS Safety Report 6538523-1 (Version None)
Quarter: 2010Q1

REPORT INFORMATION
  Report Type: 
  Country: None (occurrence: None)
  Receive Date: 20100113
  Receipt Date: 20100113
  Transmission Date: 20100710
  Serious: Yes (Hospitalization)
  Sender: FDA-Public Use
  Company Number: None

PATIENT
  Age: 75 Year
  Sex: Female
  Weight: 55.5 kg

DRUGS (2)
  1. ALIMTA [Suspect]
     Indication: PANCREATIC CARCINOMA METASTATIC
     Dosage: 610MG IV Q2 WEEKS
     Route: 042
     Dates: start: 20091214, end: 20091228
  2. GEMCITABINE [Suspect]
     Indication: PANCREATIC CARCINOMA METASTATIC
     Dosage: 1830MG IV Q 2 WEEKS
     Route: 042
     Dates: start: 20091228

REACTIONS (5)
  - ASTHENIA [None]
  - DYSSTASIA [None]
  - FAILURE TO THRIVE [None]
  - FATIGUE [None]
  - SMALL INTESTINAL OBSTRUCTION [None]
